FAERS Safety Report 25185384 (Version 3)
Quarter: 2025Q2

REPORT INFORMATION
  Report Type: Spontaneous
  Country: SI (occurrence: SI)
  Receive Date: 20250410
  Receipt Date: 20250613
  Transmission Date: 20250717
  Serious: Yes (Other)
  Sender: NOVARTIS
  Company Number: SI-002147023-NVSC2025SI056268

PATIENT
  Age: 47 Year
  Sex: Female

DRUGS (4)
  1. COSENTYX [Suspect]
     Active Substance: SECUKINUMAB
     Indication: Hidradenitis
     Dosage: 300 MG, Q4W
     Route: 058
     Dates: start: 202403, end: 20241201
  2. COSENTYX [Suspect]
     Active Substance: SECUKINUMAB
     Route: 058
     Dates: start: 20250216, end: 20250216
  3. CANDESARTAN CILEXETIL [Concomitant]
     Active Substance: CANDESARTAN CILEXETIL
     Indication: Product used for unknown indication
     Route: 065
  4. Co Nebilet [Concomitant]
     Indication: Product used for unknown indication
     Route: 065

REACTIONS (5)
  - Erysipelas [Recovered/Resolved]
  - Angina pectoris [Recovered/Resolved]
  - Otitis externa [Recovered/Resolved]
  - Skin candida [Recovered/Resolved]
  - Myalgia [Not Recovered/Not Resolved]

NARRATIVE: CASE EVENT DATE: 20240101
